FAERS Safety Report 8481491-6 (Version None)
Quarter: 2012Q3

REPORT INFORMATION
  Report Type: 
  Country: None (occurrence: None)
  Receive Date: 20120702
  Receipt Date: 20120619
  Transmission Date: 20120928
  Serious: Yes (Hospitalization)
  Sender: FDA-Public Use
  Company Number: JP-VERTEX PHARMACEUTICALS INC.-AE-2012-009241

PATIENT
  Age: 50 Year
  Sex: Male

DRUGS (4)
  1. OLMESARTAN MEDOXOMIL [Concomitant]
     Route: 048
  2. TELAVIC (TELAPREVIR) [Suspect]
     Route: 048
     Dates: start: 20120530, end: 20120605
  3. REBETOL [Concomitant]
     Route: 048
     Dates: start: 20120530, end: 20120605
  4. ROXATIDINE ACETATE HCL [Concomitant]
     Route: 048

REACTIONS (1)
  - BLOOD CREATININE INCREASED [None]
